FAERS Safety Report 10528829 (Version 2)
Quarter: 2014Q4

REPORT INFORMATION
  Report Type: Spontaneous
  Country: BR (occurrence: BR)
  Receive Date: 20141020
  Receipt Date: 20141028
  Transmission Date: 20150528
  Serious: Yes (Other)
  Sender: FDA-Public Use
  Company Number: BR-PFIZER INC-2014284671

PATIENT
  Age: 55 Year
  Sex: Female
  Weight: 53.2 kg

DRUGS (4)
  1. EFFEXOR XR [Concomitant]
     Active Substance: VENLAFAXINE HYDROCHLORIDE
     Indication: EMOTIONAL DISORDER
     Dosage: 1 DF, DAILY
  2. LIORAM [Concomitant]
     Indication: SLEEP DISORDER
     Dosage: 1 TABLET, DAILY
  3. SIMVASTATIN. [Concomitant]
     Active Substance: SIMVASTATIN
     Indication: BLOOD CHOLESTEROL ABNORMAL
     Dosage: 1 TABLET, DAILY
  4. LYRICA [Suspect]
     Active Substance: PREGABALIN
     Indication: HYPERAESTHESIA
     Dosage: 75 MG, DAILY
     Route: 048
     Dates: start: 2013

REACTIONS (2)
  - Road traffic accident [Unknown]
  - Spinal fracture [Unknown]
